FAERS Safety Report 4289652-7 (Version None)
Quarter: 2004Q1

REPORT INFORMATION
  Report Type: 
  Country: None (occurrence: None)
  Receive Date: 20040206
  Receipt Date: 20040206
  Transmission Date: 20041129
  Serious: Yes (Life-Threatening)
  Sender: FDA-Public Use
  Company Number: None

PATIENT
  Age: 86 Year
  Sex: Female
  Weight: 43.9 kg

DRUGS (1)
  1. NATRECOR [Suspect]
     Indication: CARDIAC FAILURE CONGESTIVE
     Dosage: 2 MCG/KG BOLU INTRAVENOUS, 0.01MCG/KG MIN INTRAVENOUS
     Route: 042
     Dates: start: 20031120, end: 20031120

REACTIONS (2)
  - HYPOTENSION [None]
  - HYPOVOLAEMIA [None]
